FAERS Safety Report 4602538-0 (Version None)
Quarter: 2005Q1

REPORT INFORMATION
  Report Type: 
  Country: None (occurrence: None)
  Receive Date: 20050307
  Receipt Date: 20050217
  Transmission Date: 20050727
  Serious: Yes (Hospitalization)
  Sender: FDA-Public Use
  Company Number: 136231

PATIENT
  Age: 49 Year
  Sex: Female
  Weight: 72.5755 kg

DRUGS (5)
  1. AVONEX [Suspect]
     Indication: MULTIPLE SCLEROSIS
     Dosage: 30 UG; QW; IM
     Route: 030
  2. SYNTHROID [Concomitant]
  3. PREMARIN [Concomitant]
  4. OXYBUTYNIN [Concomitant]
  5. DDAVP [Concomitant]

REACTIONS (5)
  - BLOOD DISORDER [None]
  - CELLULITIS [None]
  - INFECTION [None]
  - INJECTION SITE REACTION [None]
  - THYROID DISORDER [None]
